FAERS Safety Report 15159400 (Version 4)
Quarter: 2018Q4

REPORT INFORMATION
  Report Type: Report from Study
  Country: CO (occurrence: CO)
  Receive Date: 20180718
  Receipt Date: 20181102
  Transmission Date: 20190204
  Serious: Yes (Hospitalization)
  Sender: FDA-Public Use
  Company Number: CO-BAYER-2018-134758

PATIENT
  Age: 45 Year
  Sex: Female

DRUGS (3)
  1. BETAFERON [Suspect]
     Active Substance: INTERFERON BETA-1B
     Indication: RELAPSING-REMITTING MULTIPLE SCLEROSIS
     Dosage: 1 ML, QOD
     Route: 058
     Dates: start: 20170510, end: 201807
  2. LEVOTHYROXINE. [Concomitant]
     Active Substance: LEVOTHYROXINE
     Indication: HYPOTHYROIDISM
     Dosage: UNK
  3. BETAFERON [Suspect]
     Active Substance: INTERFERON BETA-1B
     Indication: MULTIPLE SCLEROSIS

REACTIONS (8)
  - Dyspnoea [Recovered/Resolved]
  - Prescription drug used without a prescription [None]
  - Chest pain [Recovered/Resolved]
  - Visual impairment [Recovered/Resolved]
  - Abdominal discomfort [Unknown]
  - Hospitalisation [Recovering/Resolving]
  - Cellulitis [Not Recovered/Not Resolved]
  - Musculoskeletal disorder [Unknown]

NARRATIVE: CASE EVENT DATE: 201806
